FAERS Safety Report 9315075 (Version 1)
Quarter: 2013Q2

REPORT INFORMATION
  Report Type: Spontaneous
  Country: DK (occurrence: DK)
  Receive Date: 20130529
  Receipt Date: 20130529
  Transmission Date: 20140414
  Serious: Yes (Other)
  Sender: FDA-Public Use
  Company Number: DK-JNJFOC-20130510573

PATIENT
  Sex: 0

DRUGS (10)
  1. METHYLPHENIDATE HYDROCHLORIDE [Suspect]
     Indication: EMOTIONAL DISTRESS
     Route: 050
  2. METHYLPHENIDATE HYDROCHLORIDE [Suspect]
     Indication: SUBSTANCE USE
     Route: 050
  3. METHYLPHENIDATE HYDROCHLORIDE [Suspect]
     Indication: ATTENTION DEFICIT/HYPERACTIVITY DISORDER
     Route: 050
  4. RITALIN [Suspect]
     Indication: EMOTIONAL DISTRESS
     Route: 050
  5. RITALIN [Suspect]
     Indication: SUBSTANCE USE
     Route: 050
  6. RITALIN [Suspect]
     Indication: ATTENTION DEFICIT/HYPERACTIVITY DISORDER
     Route: 050
  7. RITALIN UNO [Suspect]
     Indication: EMOTIONAL DISTRESS
     Route: 050
  8. RITALIN UNO [Suspect]
     Indication: SUBSTANCE USE
     Route: 050
  9. RITALIN UNO [Suspect]
     Indication: ATTENTION DEFICIT/HYPERACTIVITY DISORDER
     Route: 050
  10. ALCOHOL [Suspect]
     Indication: PRODUCT USED FOR UNKNOWN INDICATION
     Route: 065

REACTIONS (8)
  - Suicide attempt [Unknown]
  - Drug abuse [Unknown]
  - Incorrect route of drug administration [Unknown]
  - Accidental exposure to product [Unknown]
  - Cardiovascular disorder [Unknown]
  - Nervous system disorder [Unknown]
  - General symptom [Unknown]
  - Off label use [Unknown]
